FAERS Safety Report 26203057 (Version 1)
Quarter: 2025Q4

REPORT INFORMATION
  Report Type: Spontaneous
  Country: JP (occurrence: JP)
  Receive Date: 20251226
  Receipt Date: 20251226
  Transmission Date: 20260117
  Serious: Yes (Other)
  Sender: RECORDATI
  Company Number: JP-ORPHANEU-2025009411

PATIENT
  Age: 8 Decade
  Sex: Female

DRUGS (1)
  1. ISTURISA [Suspect]
     Active Substance: OSILODROSTAT PHOSPHATE
     Indication: Pituitary-dependent Cushing^s syndrome
     Dosage: 2MG/DAILY, BID
     Dates: start: 202508

REACTIONS (2)
  - Angina pectoris [Unknown]
  - Cerebral infarction [Unknown]

NARRATIVE: CASE EVENT DATE: 20251216
